FAERS Safety Report 15678667 (Version 1)
Quarter: 2018Q4

REPORT INFORMATION
  Report Type: Spontaneous
  Country: US (occurrence: US)
  Receive Date: 20181130
  Receipt Date: 20181130
  Transmission Date: 20190205
  Serious: No
  Sender: FDA-Public Use
  Company Number: None

PATIENT
  Age: 60 Year
  Sex: Female
  Weight: 73.35 kg

DRUGS (2)
  1. LEVALBUTEROL INHALATION SOLUTION [Suspect]
     Active Substance: LEVALBUTEROL
     Indication: CHRONIC OBSTRUCTIVE PULMONARY DISEASE
     Dosage: ?          QUANTITY:1 INHALATION(S);?
     Route: 055
     Dates: start: 20180129, end: 20180129
  2. LEVALBUTEROL INHALATION SOLUTION [Suspect]
     Active Substance: LEVALBUTEROL
     Indication: ASTHMA
     Dosage: ?          QUANTITY:1 INHALATION(S);?
     Route: 055
     Dates: start: 20180129, end: 20180129

REACTIONS (4)
  - Hypopnoea [None]
  - Dyspnoea [None]
  - Product substitution [None]
  - Lung disorder [None]

NARRATIVE: CASE EVENT DATE: 20181130
